FAERS Safety Report 19711231 (Version 2)
Quarter: 2021Q3

REPORT INFORMATION
  Report Type: Spontaneous
  Country: US (occurrence: US)
  Receive Date: 20210816
  Receipt Date: 20210826
  Transmission Date: 20211014
  Serious: Yes (Other)
  Sender: FDA-Public Use
  Company Number: US-ABBVIE-21K-163-4034880-00

PATIENT
  Age: 39 Year
  Sex: Female

DRUGS (2)
  1. HUMIRA [Suspect]
     Active Substance: ADALIMUMAB
     Indication: INFLAMMATORY BOWEL DISEASE
  2. HUMIRA [Suspect]
     Active Substance: ADALIMUMAB
     Indication: ANKYLOSING SPONDYLITIS
     Route: 058
     Dates: start: 202011, end: 202108

REACTIONS (16)
  - Gait disturbance [Not Recovered/Not Resolved]
  - Cervical vertebral fracture [Recovering/Resolving]
  - Gastrointestinal disorder [Unknown]
  - Hysterectomy [Unknown]
  - Loss of consciousness [Recovering/Resolving]
  - Malaise [Unknown]
  - Anxiety [Unknown]
  - Feeling jittery [Unknown]
  - Illness [Not Recovered/Not Resolved]
  - COVID-19 [Unknown]
  - Dizziness postural [Not Recovered/Not Resolved]
  - Colectomy [Unknown]
  - Gastric disorder [Unknown]
  - Off label use [Unknown]
  - Impaired gastric emptying [Unknown]
  - Supraventricular tachycardia [Unknown]

NARRATIVE: CASE EVENT DATE: 20210808
